FAERS Safety Report 10139735 (Version 5)
Quarter: 2014Q3

REPORT INFORMATION
  Report Type: Report from Study
  Country: BR (occurrence: BR)
  Receive Date: 20140429
  Receipt Date: 20140918
  Transmission Date: 20150326
  Serious: Yes (Death, Life-Threatening, Hospitalization)
  Sender: FDA-Public Use
  Company Number: BR-SHIRE-BR201401513

PATIENT
  Age: 16 Year
  Sex: Male

DRUGS (3)
  1. IDURSULFASE [Suspect]
     Active Substance: IDURSULFASE
     Indication: MUCOPOLYSACCHARIDOSIS II
     Dosage: 0.5 MG/KG, 1X/WEEK
     Route: 041
     Dates: start: 20040128, end: 201404
  2. CAPTOPRIL. [Concomitant]
     Active Substance: CAPTOPRIL
     Indication: CARDIOVASCULAR DISORDER
     Dosage: 12.5 MG, 2X/DAY:BID
     Route: 048
     Dates: start: 200306
  3. CARBAMAZEPIN [Concomitant]
     Active Substance: CARBAMAZEPINE
     Indication: NERVOUS SYSTEM DISORDER
     Dosage: 5 ML, 2X/DAY:BID
     Route: 048
     Dates: start: 20090805

REACTIONS (9)
  - Respiratory failure [Not Recovered/Not Resolved]
  - Respiratory arrest [Not Recovered/Not Resolved]
  - Malnutrition [Not Recovered/Not Resolved]
  - Hepatic failure [Not Recovered/Not Resolved]
  - Weight decreased [Not Recovered/Not Resolved]
  - Sepsis [Fatal]
  - Coma [Not Recovered/Not Resolved]
  - Urinary tract infection [Not Recovered/Not Resolved]
  - Pneumonia [Not Recovered/Not Resolved]

NARRATIVE: CASE EVENT DATE: 2014
